FAERS Safety Report 9720291 (Version 1)
Quarter: 2013Q4

REPORT INFORMATION
  Report Type: Spontaneous
  Country: DE (occurrence: DE)
  Receive Date: 20131129
  Receipt Date: 20131129
  Transmission Date: 20140711
  Serious: Yes (Other)
  Sender: FDA-Public Use
  Company Number: DE-ROCHE-1309196

PATIENT
  Age: 62 Year
  Sex: Male

DRUGS (5)
  1. AVASTIN [Suspect]
     Indication: RECTAL CANCER METASTATIC
     Route: 065
  2. IRINOTECAN [Concomitant]
     Indication: RECTAL CANCER METASTATIC
  3. FOLINIC ACID [Concomitant]
     Indication: RECTAL CANCER METASTATIC
  4. FLUOROURACIL [Concomitant]
     Indication: RECTAL CANCER METASTATIC
  5. OXALIPLATIN [Concomitant]
     Indication: RECTAL CANCER METASTATIC

REACTIONS (2)
  - Oncologic complication [Recovered/Resolved]
  - Fistula [Unknown]
